FAERS Safety Report 21422850 (Version 1)
Quarter: 2022Q4

REPORT INFORMATION
  Report Type: Spontaneous
  Country: US (occurrence: None)
  Receive Date: 20221006
  Receipt Date: 20221006
  Transmission Date: 20230113
  Serious: Yes (Other)
  Sender: FDA-Public Use
  Company Number: None

PATIENT
  Age: 81 Year
  Sex: Male
  Weight: 85.5 kg

DRUGS (1)
  1. NOVOLOG [Suspect]
     Active Substance: INSULIN ASPART
     Indication: Diabetes mellitus
     Dosage: OTHER QUANTITY : 18 UNIT;?FREQUENCY : TWICE A DAY;?
     Route: 058
     Dates: start: 20221002

REACTIONS (1)
  - Blood glucose decreased [None]

NARRATIVE: CASE EVENT DATE: 20221004
